FAERS Safety Report 7651284-8 (Version None)
Quarter: 2011Q3

REPORT INFORMATION
  Report Type: 
  Country: None (occurrence: None)
  Receive Date: 20110802
  Receipt Date: 20110722
  Transmission Date: 20111222
  Serious: Yes (Death, Other)
  Sender: FDA-Public Use
  Company Number: IN-GENZYME-POMP-1001671

PATIENT
  Sex: Male

DRUGS (1)
  1. MYOZYME [Suspect]
     Indication: GLYCOGEN STORAGE DISEASE TYPE II
     Dosage: 100 MG, Q2W
     Route: 042
     Dates: start: 20110602

REACTIONS (2)
  - PNEUMONIA [None]
  - DEATH [None]
